FAERS Safety Report 6533066-3 (Version None)
Quarter: 2010Q1

REPORT INFORMATION
  Report Type: 
  Country: None (occurrence: None)
  Receive Date: 20100111
  Receipt Date: 20100105
  Transmission Date: 20100710
  Serious: Yes (Hospitalization)
  Sender: FDA-Public Use
  Company Number: FR-BRISTOL-MYERS SQUIBB COMPANY-14924773

PATIENT
  Age: 81 Year
  Sex: Male

DRUGS (4)
  1. ORENCIA [Suspect]
     Indication: RHEUMATOID ARTHRITIS
     Route: 042
     Dates: start: 20080901, end: 20090601
  2. LERCANIDIPINE [Concomitant]
  3. CELIPROLOL [Concomitant]
  4. CORTANCYL [Concomitant]

REACTIONS (1)
  - NEUTROPENIA [None]
